FAERS Safety Report 8372293-X (Version None)
Quarter: 2012Q2

REPORT INFORMATION
  Report Type: 
  Country: None (occurrence: None)
  Receive Date: 20120521
  Receipt Date: 20120515
  Transmission Date: 20120825
  Serious: Yes (Hospitalization)
  Sender: FDA-Public Use
  Company Number: KR-BRISTOL-MYERS SQUIBB COMPANY-16533614

PATIENT
  Age: 77 Year
  Sex: Male
  Weight: 56 kg

DRUGS (13)
  1. TRANEXAMIC ACID [Concomitant]
     Dates: start: 20120105
  2. CARBAMAZEPINE [Concomitant]
     Dates: start: 19980101
  3. AMBROXOL [Concomitant]
     Dates: start: 20120105
  4. CISPLATIN [Suspect]
     Indication: NON-SMALL CELL LUNG CANCER STAGE IV
     Dosage: NO OF INF: 6 LAST ON 29MAR12
     Route: 042
     Dates: start: 20111215
  5. LOSARTAN POTASSIUM AND HYDROCHLOROTHIAZIDE [Concomitant]
  6. CODEINE SULFATE [Concomitant]
     Dates: start: 20120105
  7. REBAMIPIDE [Concomitant]
     Dates: start: 19980101
  8. EFONIDIPINE HCL [Concomitant]
     Dates: start: 19980101
  9. ALMAGATE [Concomitant]
     Dates: start: 20120202
  10. GABAPENTIN [Concomitant]
     Dates: start: 20120215
  11. GEMCITABINE HYDROCHLORIDE [Suspect]
     Indication: LUNG CARCINOMA CELL TYPE UNSPECIFIED STAGE IV
     Dosage: NO OF INF 11: LAST ON 29MAR12.
     Route: 042
     Dates: start: 20111215
  12. MAGNESIUM OXIDE [Concomitant]
     Dates: start: 20111207
  13. LOVASTATIN [Concomitant]
     Dates: start: 19980101

REACTIONS (1)
  - HYPERGLYCAEMIA [None]
